FAERS Safety Report 24023805 (Version 2)
Quarter: 2024Q3

REPORT INFORMATION
  Report Type: Report from Study
  Country: CN (occurrence: CN)
  Receive Date: 20240627
  Receipt Date: 20240710
  Transmission Date: 20241017
  Serious: No
  Sender: ROCHE
  Company Number: CN-ROCHE-3406232

PATIENT
  Age: 58 Year
  Sex: Male

DRUGS (1)
  1. ALECENSA [Suspect]
     Active Substance: ALECTINIB HYDROCHLORIDE
     Indication: Non-small cell lung cancer metastatic
     Dosage: 224 CAPSULES PER BOX
     Route: 048
     Dates: start: 20230719

REACTIONS (3)
  - Pain in extremity [Recovering/Resolving]
  - Constipation [Recovering/Resolving]
  - Pain [Recovering/Resolving]
